FAERS Safety Report 6991971-8 (Version None)
Quarter: 2010Q3

REPORT INFORMATION
  Report Type: 
  Country: None (occurrence: None)
  Receive Date: 20100917
  Receipt Date: 20100909
  Transmission Date: 20110219
  Serious: Yes (Hospitalization)
  Sender: FDA-Public Use
  Company Number: US-US-EMD SERONO, INC.-7012074

PATIENT
  Sex: Female
  Weight: 74 kg

DRUGS (6)
  1. REBIF [Suspect]
     Indication: MULTIPLE SCLEROSIS
     Route: 058
     Dates: end: 20100101
  2. REBIF [Suspect]
     Route: 058
     Dates: start: 20100310, end: 20100701
  3. GABAPENTIN [Concomitant]
     Indication: PAIN
  4. ZOLPIDEM [Concomitant]
     Indication: SLEEP DISORDER
  5. FLUOXETINE [Concomitant]
     Indication: DEPRESSION
  6. PRILOSEC OTC [Concomitant]
     Indication: GASTROOESOPHAGEAL REFLUX DISEASE

REACTIONS (3)
  - APPENDIX DISORDER [None]
  - INFLUENZA LIKE ILLNESS [None]
  - OVARIAN CANCER [None]
